FAERS Safety Report 8868196 (Version 1)
Quarter: 2012Q4

REPORT INFORMATION
  Report Type: 
  Country: US (occurrence: US)
  Receive Date: 20121026
  Receipt Date: 20121026
  Transmission Date: 20130627
  Serious: No
  Sender: FDA-Public Use
  Company Number: US-AMGEN-USASP2012040485

PATIENT
  Age: 49 Year
  Sex: Female
  Weight: 41.72 kg

DRUGS (1)
  1. ENBREL [Suspect]
     Indication: RHEUMATOID ARTHRITIS
     Dosage: 50 mg, qwk (Keep this medication refregerated)
     Route: 058
     Dates: start: 20070101

REACTIONS (1)
  - Asthenia [Unknown]
